FAERS Safety Report 12504446 (Version 8)
Quarter: 2017Q1

REPORT INFORMATION
  Report Type: Spontaneous
  Country: US (occurrence: US)
  Receive Date: 20160628
  Receipt Date: 20170206
  Transmission Date: 20170428
  Serious: Yes (Congenital Anomaly, Other)
  Sender: FDA-Public Use
  Company Number: PHHY2015US129825

PATIENT
  Sex: Female

DRUGS (4)
  1. ZOFRAN ODT [Suspect]
     Active Substance: ONDANSETRON HYDROCHLORIDE
     Indication: FOETAL EXPOSURE DURING PREGNANCY
     Route: 064
  2. ZOFRAN [Suspect]
     Active Substance: ONDANSETRON HYDROCHLORIDE
     Indication: FOETAL EXPOSURE DURING PREGNANCY
     Route: 064
  3. ONDANSETRON DR REDDY [Suspect]
     Active Substance: ONDANSETRON
     Indication: FOETAL EXPOSURE DURING PREGNANCY
     Dosage: MOTHER^S DOSE: 4 MG, UNK
     Route: 064
  4. ONDANSETRON HYDROCHLORIDE. [Suspect]
     Active Substance: ONDANSETRON HYDROCHLORIDE
     Indication: FOETAL EXPOSURE DURING PREGNANCY
     Dosage: MOTHER DOSE: 4 MG, UNK
     Route: 064

REACTIONS (13)
  - Speech disorder [Unknown]
  - Otitis media acute [Unknown]
  - Emotional distress [Unknown]
  - Conjunctivitis [Unknown]
  - Pain [Unknown]
  - Dyspnoea [Unknown]
  - Craniofacial deformity [Unknown]
  - Lung hyperinflation [Unknown]
  - Body tinea [Unknown]
  - Ear infection [Unknown]
  - Foetal exposure during pregnancy [Unknown]
  - Anxiety [Unknown]
  - Cleft palate [Unknown]
